FAERS Safety Report 23466562 (Version 9)
Quarter: 2025Q4

REPORT INFORMATION
  Report Type: Report from Study
  Country: CA (occurrence: CA)
  Receive Date: 20240201
  Receipt Date: 20251201
  Transmission Date: 20260118
  Serious: Yes (Other)
  Sender: JOHNSON AND JOHNSON
  Company Number: CA-JNJFOC-20231166785

PATIENT
  Age: 51 Year
  Sex: Female
  Weight: 119.2 kg

DRUGS (10)
  1. REMICADE [Suspect]
     Active Substance: INFLIXIMAB
     Indication: Psoriatic arthropathy
     Dosage: 7 UNITS
     Route: 041
     Dates: start: 20161110
  2. REMICADE [Suspect]
     Active Substance: INFLIXIMAB
     Route: 041
     Dates: start: 20181110
  3. REMICADE [Suspect]
     Active Substance: INFLIXIMAB
     Route: 041
     Dates: start: 20161110
  4. REMICADE [Suspect]
     Active Substance: INFLIXIMAB
     Route: 041
     Dates: start: 20161110
  5. REMICADE [Suspect]
     Active Substance: INFLIXIMAB
     Route: 041
     Dates: start: 20161110
  6. REMICADE [Suspect]
     Active Substance: INFLIXIMAB
     Route: 041
     Dates: start: 20161110
  7. REMICADE [Suspect]
     Active Substance: INFLIXIMAB
     Route: 041
     Dates: start: 20161110
  8. REMICADE [Suspect]
     Active Substance: INFLIXIMAB
     Route: 041
  9. REMICADE [Suspect]
     Active Substance: INFLIXIMAB
     Route: 041
  10. PROGESTERONE [Suspect]
     Active Substance: PROGESTERONE
     Indication: Endometrial thickening

REACTIONS (12)
  - Sciatic nerve neuropathy [Not Recovered/Not Resolved]
  - Spinal osteoarthritis [Unknown]
  - Chronic sinusitis [Recovering/Resolving]
  - Fungal infection [Recovering/Resolving]
  - Nausea [Unknown]
  - Headache [Unknown]
  - COVID-19 [Recovered/Resolved]
  - Vaginal haemorrhage [Recovered/Resolved]
  - Joint stiffness [Recovering/Resolving]
  - Hypoaesthesia [Unknown]
  - Menopause [Not Recovered/Not Resolved]
  - Endometrial thickening [Unknown]

NARRATIVE: CASE EVENT DATE: 20231112
